FAERS Safety Report 15605704 (Version 1)
Quarter: 2018Q4

REPORT INFORMATION
  Report Type: Spontaneous
  Country: IT (occurrence: IT)
  Receive Date: 20181112
  Receipt Date: 20181112
  Transmission Date: 20190205
  Serious: Yes (Hospitalization)
  Sender: FDA-Public Use
  Company Number: IT-ACCORD-091928

PATIENT
  Age: 11 Year
  Sex: Female

DRUGS (20)
  1. IMMUNOGLOBULIN HUMAN NORMAL [Suspect]
     Active Substance: HUMAN IMMUNOGLOBULIN G
     Indication: PRODUCT USED FOR UNKNOWN INDICATION
     Route: 042
     Dates: start: 20171113, end: 20171115
  2. FLUCONAZOLE. [Concomitant]
     Active Substance: FLUCONAZOLE
  3. ACICLOVIR [Concomitant]
     Active Substance: ACYCLOVIR
     Route: 042
     Dates: start: 20171114, end: 20171211
  4. URBASON [Concomitant]
     Active Substance: METHYLPREDNISOLONE
     Route: 042
     Dates: start: 20171114
  5. LASIX [Concomitant]
     Active Substance: FUROSEMIDE
     Route: 042
     Dates: start: 20171110
  6. RANITIDINE. [Concomitant]
     Active Substance: RANITIDINE
     Route: 042
  7. NYSTATIN. [Concomitant]
     Active Substance: NYSTATIN
  8. URSODEOXYCHOLATE SODIUM/URSODEOXYCHOLIC ACID [Concomitant]
  9. CIPROFLOXACIN. [Concomitant]
     Active Substance: CIPROFLOXACIN
     Route: 048
     Dates: start: 20171110, end: 20171115
  10. ALOXI [Concomitant]
     Active Substance: PALONOSETRON HYDROCHLORIDE
     Dates: start: 20171111
  11. THIOTEPA. [Suspect]
     Active Substance: THIOTEPA
     Indication: ALLOGENIC BONE MARROW TRANSPLANTATION THERAPY
     Route: 042
     Dates: start: 20171111, end: 20171112
  12. TRIMETON [Concomitant]
     Active Substance: CHLORPHENIRAMINE MALEATE
     Route: 042
  13. EMEND [Concomitant]
     Active Substance: APREPITANT
     Dates: start: 20171111, end: 20171113
  14. UROMITEXAN [Concomitant]
     Active Substance: MESNA
     Dates: start: 20171115
  15. ANTRA [Concomitant]
     Active Substance: OMEPRAZOLE
     Route: 042
  16. METHOTREXATE. [Suspect]
     Active Substance: METHOTREXATE
     Indication: PRODUCT USED FOR UNKNOWN INDICATION
     Route: 042
     Dates: start: 20171119, end: 20171124
  17. CYCLOPHOSPHAMIDE. [Suspect]
     Active Substance: CYCLOPHOSPHAMIDE
     Indication: ALLOGENIC BONE MARROW TRANSPLANTATION THERAPY
     Route: 042
     Dates: start: 20171113, end: 20171114
  18. ACICLOVIR [Concomitant]
     Active Substance: ACYCLOVIR
     Route: 048
     Dates: start: 20171110, end: 20171113
  19. TACHIPIRINA [Concomitant]
     Active Substance: ACETAMINOPHEN
     Route: 048
  20. SANDIMMUN [Concomitant]
     Active Substance: CYCLOSPORINE
     Dates: start: 20171113

REACTIONS (3)
  - Epistaxis [Recovered/Resolved]
  - Ejection fraction decreased [Recovered/Resolved]
  - Mucosal inflammation [Recovered/Resolved]

NARRATIVE: CASE EVENT DATE: 20171121
